FAERS Safety Report 5754893-6 (Version None)
Quarter: 2008Q2

REPORT INFORMATION
  Report Type: 
  Country: None (occurrence: None)
  Receive Date: 20080527
  Receipt Date: 20080518
  Transmission Date: 20081010
  Serious: Yes (Hospitalization, Other)
  Sender: FDA-Public Use
  Company Number: 2008SP003793

PATIENT
  Age: 43 Year
  Sex: Male

DRUGS (4)
  1. PEG-INTRON [Suspect]
     Indication: HEPATITIS C
     Dosage: 150 MCG;QW;SC, 96 MCG; QW; 150 MCG; QW
     Route: 058
     Dates: start: 20071127, end: 20071201
  2. PEG-INTRON [Suspect]
     Indication: HEPATITIS C
     Dosage: 150 MCG;QW;SC, 96 MCG; QW; 150 MCG; QW
     Route: 058
     Dates: start: 20071201, end: 20080501
  3. PEG-INTRON [Suspect]
     Indication: HEPATITIS C
     Dosage: 150 MCG;QW;SC, 96 MCG; QW; 150 MCG; QW
     Route: 058
     Dates: start: 20080501
  4. RIBAVIRIN [Suspect]
     Indication: HEPATITIS C
     Dosage: PO
     Route: 048
     Dates: start: 20071127

REACTIONS (16)
  - APHONIA [None]
  - BACK PAIN [None]
  - DYSPHONIA [None]
  - ECZEMA [None]
  - FLUID RETENTION [None]
  - INSOMNIA [None]
  - PAIN IN EXTREMITY [None]
  - PHARYNGOLARYNGEAL PAIN [None]
  - PLATELET COUNT DECREASED [None]
  - PRURITUS [None]
  - PYREXIA [None]
  - RED BLOOD CELL COUNT DECREASED [None]
  - SINUSITIS [None]
  - THROAT IRRITATION [None]
  - THYROID DISORDER [None]
  - WHITE BLOOD CELL COUNT DECREASED [None]
